FAERS Safety Report 4530218-9 (Version None)
Quarter: 2004Q4

REPORT INFORMATION
  Report Type: 
  Country: None (occurrence: None)
  Receive Date: 20041215
  Receipt Date: 20041203
  Transmission Date: 20050328
  Serious: Yes (Other)
  Sender: FDA-Public Use
  Company Number: 2004108052

PATIENT
  Age: 52 Year
  Sex: Female

DRUGS (1)
  1. NEURONTIN [Suspect]
     Indication: ILL-DEFINED DISORDER
     Dosage: 1200 MG (300 MG, 4 IN 1 D)

REACTIONS (2)
  - SHOULDER OPERATION [None]
  - SPINAL OPERATION [None]
